FAERS Safety Report 21564468 (Version 3)
Quarter: 2023Q1

REPORT INFORMATION
  Report Type: Report from Study
  Country: US (occurrence: US)
  Receive Date: 20221108
  Receipt Date: 20230327
  Transmission Date: 20230418
  Serious: Yes (Other)
  Sender: FDA-Public Use
  Company Number: US-ABBVIE-22K-163-4400035-00

PATIENT
  Age: 36 Year
  Sex: Female

DRUGS (3)
  1. HUMIRA [Suspect]
     Active Substance: ADALIMUMAB
     Indication: Hidradenitis
     Dosage: CITRATE FREE, FORM STRENGTH 40MG
     Route: 058
     Dates: end: 202201
  2. HUMIRA [Suspect]
     Active Substance: ADALIMUMAB
     Dosage: FIRST ADMIN DATE AND LAST ADMIN DATE - 2022, CITRATE FREE, FORM STRENGTH 40MG
     Route: 058
     Dates: start: 20210915
  3. HUMIRA [Suspect]
     Active Substance: ADALIMUMAB
     Dosage: CITRATE FREE, FORM STRENGTH 40MG
     Route: 058

REACTIONS (7)
  - Radical hysterectomy [Recovering/Resolving]
  - Ankylosing spondylitis [Recovering/Resolving]
  - Nephritis [Recovered/Resolved]
  - Hidradenitis [Recovered/Resolved]
  - Hidradenitis [Recovering/Resolving]
  - Neoplasm malignant [Unknown]
  - Procedural pain [Not Recovered/Not Resolved]

NARRATIVE: CASE EVENT DATE: 20220711
